FAERS Safety Report 18743966 (Version 2)
Quarter: 2022Q1

REPORT INFORMATION
  Report Type: Spontaneous
  Country: US (occurrence: US)
  Receive Date: 20210114
  Receipt Date: 20220301
  Transmission Date: 20220424
  Serious: Yes (Other)
  Sender: FDA-Public Use
  Company Number: US-SA-2021SA006276

PATIENT
  Age: 59 Year
  Sex: Female

DRUGS (5)
  1. LEFLUNOMIDE [Suspect]
     Active Substance: LEFLUNOMIDE
     Indication: Rheumatoid arthritis
     Dosage: 20 MG, QD
     Dates: start: 201409
  2. IBUPROFEN [Concomitant]
     Active Substance: IBUPROFEN
     Indication: Arthralgia
     Dosage: UNK, QD
  3. NAPROXEN [Concomitant]
     Active Substance: NAPROXEN
     Indication: Arthralgia
     Dosage: UNK, PRN
  4. PREDNISONE [Concomitant]
     Active Substance: PREDNISONE
     Indication: Rheumatoid arthritis
     Dosage: 5 MG, QD
  5. PREDNISONE [Concomitant]
     Active Substance: PREDNISONE
     Dosage: HIGH DOSE

REACTIONS (6)
  - Autoimmune hepatitis [Recovering/Resolving]
  - Decreased appetite [Recovering/Resolving]
  - Fatigue [Recovering/Resolving]
  - Hepatitis [Recovering/Resolving]
  - Hepatic necrosis [Recovering/Resolving]
  - Hepatic fibrosis [Recovering/Resolving]

NARRATIVE: CASE EVENT DATE: 20150101
